FAERS Safety Report 7391699-9 (Version None)
Quarter: 2011Q2

REPORT INFORMATION
  Report Type: 
  Country: None (occurrence: None)
  Receive Date: 20110404
  Receipt Date: 20110401
  Transmission Date: 20111010
  Serious: Yes (Death, Life-Threatening, Hospitalization)
  Sender: FDA-Public Use
  Company Number: GB-NAPPMUNDI-GBR-2010-0007281

PATIENT
  Age: 68 Year
  Sex: Female
  Weight: 51.7 kg

DRUGS (7)
  1. AUGMENTIN '125' [Concomitant]
     Dosage: UNK
     Route: 065
     Dates: start: 20060505, end: 20060511
  2. SUNITINIB MALATE [Suspect]
     Indication: RENAL CELL CARCINOMA
     Dosage: 50 MG, DAILY CYCLIC
     Route: 048
     Dates: start: 20060407
  3. MS CONTIN [Suspect]
     Indication: PRODUCT USED FOR UNKNOWN INDICATION
     Dosage: UNK
     Route: 048
     Dates: start: 20060420, end: 20060520
  4. GABAPENTIN [Suspect]
     Indication: PRODUCT USED FOR UNKNOWN INDICATION
     Dosage: UNK
     Route: 065
  5. SENNA                              /00142201/ [Concomitant]
     Route: 065
  6. SEVREDOL TABLETS [Suspect]
     Indication: PRODUCT USED FOR UNKNOWN INDICATION
     Dosage: UNK
     Route: 065
     Dates: start: 20041201
  7. IBANDRONIC ACID [Concomitant]
     Dosage: UNK
     Route: 065
     Dates: start: 20060513

REACTIONS (4)
  - DIZZINESS [None]
  - CONSTIPATION [None]
  - NEOPLASM MALIGNANT [None]
  - PAIN [None]
